FAERS Safety Report 21099829 (Version 3)
Quarter: 2022Q3

REPORT INFORMATION
  Report Type: Spontaneous
  Country: JP (occurrence: JP)
  Receive Date: 20220719
  Receipt Date: 20220907
  Transmission Date: 20221027
  Serious: Yes (Death, Other)
  Sender: FDA-Public Use
  Company Number: JP-OTSUKA-2022_036573

PATIENT
  Age: 80 Year
  Sex: Male

DRUGS (3)
  1. TOLVAPTAN [Suspect]
     Active Substance: TOLVAPTAN
     Indication: Cardiac failure chronic
     Dosage: 8 MG, QD
     Route: 041
     Dates: start: 20220620, end: 20220627
  2. SAMSCA [Suspect]
     Active Substance: TOLVAPTAN
     Indication: Cardiac failure chronic
     Dosage: UNK
     Route: 048
     Dates: start: 20220205
  3. FUROSEMIDE [Concomitant]
     Active Substance: FUROSEMIDE
     Indication: Polyuria
     Dosage: 20-40 MG/DAY BY CONTINUOUS DRIP INFUSION (THE DOSE WAS CHANGED DAY TO DAY)
     Route: 041

REACTIONS (2)
  - Hypernatraemia [Recovering/Resolving]
  - Cardiac failure acute [Fatal]

NARRATIVE: CASE EVENT DATE: 20220627
